FAERS Safety Report 6926263-6 (Version None)
Quarter: 2010Q3

REPORT INFORMATION
  Report Type: 
  Country: None (occurrence: None)
  Receive Date: 20100811
  Receipt Date: 20100806
  Transmission Date: 20110219
  Serious: Yes (Other)
  Sender: FDA-Public Use
  Company Number: 2010SP022692

PATIENT
  Age: 49 Year
  Sex: Male

DRUGS (5)
  1. NASONEX [Suspect]
     Indication: NASAL POLYPS
     Dosage: 2 DF; QAM; NAS
     Route: 045
     Dates: start: 20070730, end: 20080728
  2. SOLUPRED [Concomitant]
  3. CELESTONE [Concomitant]
  4. NASACORT [Concomitant]
  5. AERIUS [Concomitant]

REACTIONS (1)
  - OSTEONECROSIS [None]
